FAERS Safety Report 15507393 (Version 7)
Quarter: 2019Q4

REPORT INFORMATION
  Report Type: Report from Study
  Country: IL (occurrence: IL)
  Receive Date: 20181016
  Receipt Date: 20191213
  Transmission Date: 20200122
  Serious: Yes (Hospitalization)
  Sender: FDA-Public Use
  Company Number: IL-JNJFOC-20180906202

PATIENT
  Age: 32 Year
  Sex: Female
  Weight: 68 kg

DRUGS (1)
  1. SIMPONI [Suspect]
     Active Substance: GOLIMUMAB
     Indication: SACROILIITIS
     Route: 058
     Dates: start: 20180916

REACTIONS (7)
  - Hypertension [Recovered/Resolved]
  - Weight fluctuation [Not Recovered/Not Resolved]
  - Product use in unapproved indication [Unknown]
  - Pelvic infection [Recovered/Resolved]
  - Off label use [Unknown]
  - Herpes virus infection [Recovered/Resolved]
  - Haematoma [Not Recovered/Not Resolved]

NARRATIVE: CASE EVENT DATE: 2018
